FAERS Safety Report 17239430 (Version 1)
Quarter: 2020Q1

REPORT INFORMATION
  Report Type: Spontaneous
  Country: US (occurrence: US)
  Receive Date: 20200106
  Receipt Date: 20200106
  Transmission Date: 20200409
  Serious: No
  Sender: FDA-Public Use
  Company Number: US-BAUSCH-BL-2019-065688

PATIENT
  Age: 33 Year
  Sex: Female

DRUGS (1)
  1. POLYMYXIN B SULFATE AND TRIMETHOPRIM [Suspect]
     Active Substance: POLYMYXIN B SULFATE\TRIMETHOPRIM SULFATE
     Indication: CONJUNCTIVITIS
     Dosage: 1 DROP IN THE LEFT EYE EVERY 6 HOURS
     Route: 047
     Dates: start: 20191216, end: 20191216

REACTIONS (6)
  - Eye allergy [Unknown]
  - Drug hypersensitivity [Unknown]
  - Scleral disorder [Recovered/Resolved]
  - Eye swelling [Recovered/Resolved]
  - Eyelid margin crusting [Recovered/Resolved]
  - Ocular hyperaemia [Not Recovered/Not Resolved]

NARRATIVE: CASE EVENT DATE: 201912
